FAERS Safety Report 6975260-3 (Version None)
Quarter: 2010Q3

REPORT INFORMATION
  Report Type: 
  Country: None (occurrence: None)
  Receive Date: 20100910
  Receipt Date: 20090304
  Transmission Date: 20110219
  Serious: No
  Sender: FDA-Public Use
  Company Number: US-WYE-H08471509

PATIENT
  Sex: Female
  Weight: 77.63 kg

DRUGS (3)
  1. PRISTIQ [Suspect]
     Indication: DEPRESSION
     Route: 048
     Dates: start: 20090218, end: 20090301
  2. PRISTIQ [Suspect]
     Indication: ANXIETY
  3. SERTRALINE HYDROCHLORIDE [Concomitant]
     Dosage: UNKNOWN
     Dates: start: 20070101, end: 20090221

REACTIONS (10)
  - ABDOMINAL DISTENSION [None]
  - ABDOMINAL PAIN [None]
  - ANXIETY [None]
  - BREAST TENDERNESS [None]
  - CHEST DISCOMFORT [None]
  - DIARRHOEA [None]
  - DRUG WITHDRAWAL SYNDROME [None]
  - NAUSEA [None]
  - SWELLING [None]
  - VULVOVAGINAL PAIN [None]
